FAERS Safety Report 8463064-4 (Version None)
Quarter: 2012Q2

REPORT INFORMATION
  Report Type: 
  Country: None (occurrence: None)
  Receive Date: 20120625
  Receipt Date: 20120620
  Transmission Date: 20120825
  Serious: Yes (Other)
  Sender: FDA-Public Use
  Company Number: US-PFIZER INC-2012149513

PATIENT
  Sex: Female

DRUGS (5)
  1. PROCARDIA XL [Suspect]
     Dosage: 60 MG, DAILY
  2. LISINOPRIL [Concomitant]
     Indication: BLOOD PRESSURE ABNORMAL
     Dosage: 5 MG, DAILY
  3. PROCARDIA XL [Suspect]
     Indication: BLOOD PRESSURE ABNORMAL
     Dosage: 30 MG, DAILY
  4. GLUCOPHAGE [Suspect]
     Indication: DIABETES MELLITUS
     Dosage: 500 MG, DAILY
  5. ASPIRIN [Concomitant]
     Dosage: 81 MG, DAILY

REACTIONS (5)
  - WEIGHT DECREASED [None]
  - DIABETES MELLITUS [None]
  - STRESS [None]
  - WEIGHT INCREASED [None]
  - RENAL DISORDER [None]
